FAERS Safety Report 5258442-0 (Version None)
Quarter: 2007Q1

REPORT INFORMATION
  Report Type: 
  Country: None (occurrence: None)
  Receive Date: 20061217
  Receipt Date: 20060714
  Transmission Date: 20070707
  Serious: Yes (Other)
  Sender: FDA-Public Use
  Company Number: US-JNJFOC-20060703681

PATIENT
  Age: 38 Year
  Sex: Female
  Weight: 94.3482 kg

DRUGS (1)
  1. LEVAQUIN [Suspect]
     Indication: SINUSITIS
     Dosage: 750 MG, 1 IN 1 DAY, ORAL
     Route: 048
     Dates: start: 20060713, end: 20060713

REACTIONS (5)
  - DYSPNOEA [None]
  - ERYTHEMA [None]
  - HYPOAESTHESIA ORAL [None]
  - PARAESTHESIA ORAL [None]
  - SWELLING FACE [None]
